FAERS Safety Report 18380935 (Version 3)
Quarter: 2020Q4

REPORT INFORMATION
  Report Type: Spontaneous
  Country: US (occurrence: US)
  Receive Date: 20201014
  Receipt Date: 20201229
  Transmission Date: 20210114
  Serious: No
  Sender: FDA-Public Use
  Company Number: US-PFIZER INC-2020389447

PATIENT
  Age: 6 Year
  Sex: Male

DRUGS (1)
  1. GENOTROPIN [Suspect]
     Active Substance: SOMATROPIN
     Dosage: 0.5 MG, DAILY
     Dates: start: 202008

REACTIONS (3)
  - Pain [Unknown]
  - Injection site pain [Unknown]
  - Taste disorder [Unknown]

NARRATIVE: CASE EVENT DATE: 2020
